FAERS Safety Report 20003757 (Version 1)
Quarter: 2021Q4

REPORT INFORMATION
  Report Type: Spontaneous
  Country: US (occurrence: US)
  Receive Date: 20211027
  Receipt Date: 20211027
  Transmission Date: 20220303
  Serious: Yes (Hospitalization, Other)
  Sender: FDA-Public Use
  Company Number: US-ALEMBIC PHARMACUETICALS LIMITED-2021SCAL000426

PATIENT

DRUGS (2)
  1. LEFLUNOMIDE [Suspect]
     Active Substance: LEFLUNOMIDE
     Indication: Rheumatoid arthritis
     Dosage: UNK
     Route: 065
  2. PREDNISONE [Suspect]
     Active Substance: PREDNISONE
     Indication: Rheumatoid arthritis
     Dosage: UNK
     Route: 065

REACTIONS (12)
  - Pulmonary alveolar haemorrhage [Unknown]
  - Encephalopathy [Unknown]
  - Renal failure [Not Recovered/Not Resolved]
  - Shock [Unknown]
  - Respiratory distress [Not Recovered/Not Resolved]
  - Skin ulcer [Unknown]
  - Bacteraemia [Unknown]
  - Cellulitis gangrenous [Unknown]
  - Pulmonary cavitation [Unknown]
  - Abscess limb [Unknown]
  - Ecthyma [Unknown]
  - Purulent discharge [Unknown]
